FAERS Safety Report 5779555-0 (Version None)
Quarter: 2008Q2

REPORT INFORMATION
  Report Type: 
  Country: None (occurrence: None)
  Receive Date: 20080619
  Receipt Date: 20080609
  Transmission Date: 20081010
  Serious: Yes (Other)
  Sender: FDA-Public Use
  Company Number: GB-ABBOTT-08P-167-0456142-00

PATIENT
  Sex: Female

DRUGS (10)
  1. SIBUTRAMINE (BLINDED) [Suspect]
     Indication: OBESITY
     Route: 048
     Dates: start: 20040213
  2. METFORMIN [Concomitant]
     Indication: TYPE 2 DIABETES MELLITUS
     Dates: start: 19910101
  3. VALSARTAN [Concomitant]
     Indication: HYPERTENSION
     Dates: start: 20010101
  4. SIMVASTATIN [Concomitant]
     Indication: ISCHAEMIC HEART DISEASE PROPHYLAXIS
     Dates: start: 20060801
  5. LEVOTHYROXINE SODIUM [Concomitant]
     Indication: HYPOTHYROIDISM
     Dates: start: 19961211
  6. FUROSEMIDE [Concomitant]
     Indication: OEDEMA
     Dates: start: 20010301
  7. MEBEVERINE [Concomitant]
     Indication: DIVERTICULITIS
     Dates: start: 19970101
  8. ISOPHANE INSULIN [Concomitant]
     Indication: TYPE 2 DIABETES MELLITUS
     Dates: start: 19981208
  9. MIXTARD HUMAN 70/30 [Concomitant]
     Indication: TYPE 2 DIABETES MELLITUS
     Dates: start: 20020225
  10. ASPIRIN [Concomitant]
     Indication: ISCHAEMIC HEART DISEASE PROPHYLAXIS
     Dates: start: 20060801

REACTIONS (1)
  - RENAL NEOPLASM [None]
